FAERS Safety Report 7527367-X (Version None)
Quarter: 2011Q2

REPORT INFORMATION
  Report Type: 
  Country: None (occurrence: None)
  Receive Date: 20110602
  Receipt Date: 20110520
  Transmission Date: 20111010
  Serious: Yes (Hospitalization, Other)
  Sender: FDA-Public Use
  Company Number: JPI-P-015126

PATIENT
  Age: 48 Year
  Sex: Female
  Weight: 97.5234 kg

DRUGS (2)
  1. XYREM [Suspect]
     Indication: INSOMNIA
     Dosage: 7.5 GM (3.75 GM, 2 IN 1 D), ORAL
     Route: 048
     Dates: start: 20070101
  2. UNSPECIFIED PAIN MEDICATIONS [Concomitant]

REACTIONS (4)
  - MUSCLE SPASMS [None]
  - SPINAL COLUMN STENOSIS [None]
  - POST PROCEDURAL COMPLICATION [None]
  - INTERVERTEBRAL DISC PROTRUSION [None]
